FAERS Safety Report 4715292-9 (Version None)
Quarter: 2005Q3

REPORT INFORMATION
  Report Type: 
  Country: None (occurrence: None)
  Receive Date: 20050715
  Receipt Date: 20030516
  Transmission Date: 20060218
  Serious: Yes (Death, Hospitalization, Other)
  Sender: FDA-Public Use
  Company Number: 200314758US

PATIENT
  Sex: Male
  Weight: 81.6 kg

DRUGS (2)
  1. DOCETAXEL [Suspect]
     Indication: LUNG CANCER METASTATIC
     Route: 042
     Dates: start: 20030414, end: 20030513
  2. OXYCONTIN [Concomitant]
     Dosage: DOSE: UNK
     Dates: start: 20030414

REACTIONS (5)
  - CONVULSION [None]
  - DEATH [None]
  - DISEASE PROGRESSION [None]
  - LYMPHOPENIA [None]
  - METASTASES TO CENTRAL NERVOUS SYSTEM [None]
